FAERS Safety Report 10678892 (Version 2)
Quarter: 2015Q1

REPORT INFORMATION
  Report Type: Spontaneous
  Country: US (occurrence: US)
  Receive Date: 20141229
  Receipt Date: 20150205
  Transmission Date: 20150720
  Serious: No
  Sender: FDA-Public Use
  Company Number: US-PFIZER INC-2014357306

PATIENT
  Age: 61 Year
  Sex: Female

DRUGS (1)
  1. RELPAX [Suspect]
     Active Substance: ELETRIPTAN HYDROBROMIDE
     Indication: MIGRAINE
     Dosage: 40 MG, AS NEEDED (40 MG, ONLY 3 TIMES A WEEK. IF NEEDED)
     Dates: start: 2011

REACTIONS (1)
  - Drug ineffective [Not Recovered/Not Resolved]
